FAERS Safety Report 5847539-X (Version None)
Quarter: 2008Q3

REPORT INFORMATION
  Report Type: 
  Country: None (occurrence: None)
  Receive Date: 20080814
  Receipt Date: 20080729
  Transmission Date: 20090109
  Serious: Yes (Hospitalization)
  Sender: FDA-Public Use
  Company Number: 8011222

PATIENT
  Sex: Male
  Weight: 15.2 kg

DRUGS (2)
  1. KEPPRA [Suspect]
     Dosage: 2000 MG /D TRP
     Route: 064
     Dates: start: 20040928, end: 20050630
  2. VITAMIN TAB [Concomitant]

REACTIONS (5)
  - FEEDING DISORDER NEONATAL [None]
  - JAUNDICE NEONATAL [None]
  - MATERNAL DRUGS AFFECTING FOETUS [None]
  - NEONATAL RESPIRATORY DISTRESS SYNDROME [None]
  - TRANSIENT TACHYPNOEA OF THE NEWBORN [None]
